FAERS Safety Report 10876425 (Version 2)
Quarter: 2015Q1

REPORT INFORMATION
  Report Type: Report from Study
  Country: US (occurrence: US)
  Receive Date: 20150228
  Receipt Date: 20150308
  Transmission Date: 20150721
  Serious: Yes (Other)
  Sender: FDA-Public Use
  Company Number: PHEH2014US002156

PATIENT
  Age: 32 Year
  Sex: Female
  Weight: 81.63 kg

DRUGS (1)
  1. GILENYA [Suspect]
     Active Substance: FINGOLIMOD HYDROCHLORIDE
     Indication: MULTIPLE SCLEROSIS
     Dosage: 0.5 MG, QD
     Route: 048
     Dates: start: 20140118

REACTIONS (6)
  - Nausea [Recovered/Resolved]
  - Nausea [Not Recovered/Not Resolved]
  - Vomiting [Recovering/Resolving]
  - Abdominal pain upper [Not Recovered/Not Resolved]
  - Biliary colic [Not Recovered/Not Resolved]
  - Dehydration [Unknown]

NARRATIVE: CASE EVENT DATE: 20140128
